FAERS Safety Report 13891253 (Version 1)
Quarter: 2017Q3

REPORT INFORMATION
  Report Type: Spontaneous
  Country: US (occurrence: US)
  Receive Date: 20170822
  Receipt Date: 20170822
  Transmission Date: 20171127
  Serious: No
  Sender: FDA-Public Use
  Company Number: US-PFIZER INC-2017357390

PATIENT
  Age: 57 Year
  Sex: Female

DRUGS (1)
  1. IBRANCE [Suspect]
     Active Substance: PALBOCICLIB
     Indication: BREAST CANCER FEMALE
     Dosage: 1 DF, CYCLIC [TAKE 1 CAPSULE BY MOUTH DAILY FOR 21 DAYS EVERY 28 DAYS]
     Route: 048
     Dates: start: 201708

REACTIONS (2)
  - Dizziness [Unknown]
  - Hyperhidrosis [Unknown]
